FAERS Safety Report 5243966-2 (Version None)
Quarter: 2007Q1

REPORT INFORMATION
  Report Type: 
  Country: None (occurrence: None)
  Receive Date: 20070215
  Receipt Date: 20070201
  Transmission Date: 20070707
  Serious: Yes (Other)
  Sender: FDA-Public Use
  Company Number: 235953

PATIENT
  Age: 59 Year
  Sex: Female

DRUGS (6)
  1. XOLAIR [Suspect]
     Indication: ASTHMA
     Dosage: 225 MG, 2/WEEK, SUBCUTANEOUS
     Route: 058
     Dates: start: 20060906
  2. SALBUTAMOL (ALBUTEROL/ALBUTEROL SULFATE) [Concomitant]
  3. PREDNISOLONE [Concomitant]
  4. SINGULAIR [Concomitant]
  5. OMEPRAZOLE [Concomitant]
  6. ESTROGEN (ESTROGENS NOS) [Concomitant]

REACTIONS (2)
  - ASPHYXIA [None]
  - ASTHMATIC CRISIS [None]
